FAERS Safety Report 10087011 (Version 1)
Quarter: 2014Q2

REPORT INFORMATION
  Report Type: Spontaneous
  Country: IT (occurrence: IT)
  Receive Date: 20140418
  Receipt Date: 20140418
  Transmission Date: 20141212
  Serious: Yes (Hospitalization)
  Sender: FDA-Public Use
  Company Number: PHHY2014IT047364

PATIENT
  Age: 55 Year
  Sex: Male

DRUGS (5)
  1. TAREG [Suspect]
     Dosage: 320 MG, DAILY
     Dates: start: 20140320, end: 20140329
  2. TAREG [Suspect]
     Dosage: UNK UKN, UNK
  3. CONGESCOR [Suspect]
     Dosage: 1.25 MG, DAILY
     Dates: start: 20140201, end: 20140329
  4. DUOPLAVIN [Concomitant]
     Dosage: UNK UKN, UNK
  5. TORVAST [Concomitant]
     Dosage: UNK UKN, UNK

REACTIONS (2)
  - Bradycardia [Recovered/Resolved]
  - Presyncope [Recovered/Resolved]
